FAERS Safety Report 11180518 (Version 3)
Quarter: 2015Q3

REPORT INFORMATION
  Report Type: Spontaneous
  Country: FR (occurrence: FR)
  Receive Date: 20150611
  Receipt Date: 20150715
  Transmission Date: 20151125
  Serious: Yes (Hospitalization)
  Sender: FDA-Public Use
  Company Number: FR-PFIZER INC-2015191381

PATIENT
  Age: 80 Year
  Sex: Male

DRUGS (14)
  1. LACRIFLUID [Concomitant]
     Active Substance: CARBOMER
     Dosage: 1 GTT, 1X/DAY
     Route: 047
  2. PRAVASTATIN SODIUM. [Concomitant]
     Active Substance: PRAVASTATIN SODIUM
     Dosage: 10 MG, 1X/DAY
     Route: 048
     Dates: end: 20150422
  3. XALACOM [Concomitant]
     Active Substance: LATANOPROST\TIMOLOL MALEATE
     Dosage: 1 GTT, 2X/DAY
     Route: 047
  4. PERMIXON [Concomitant]
     Active Substance: SAW PALMETTO
     Dosage: 60 MG, 2X/DAY
     Route: 048
  5. BRILIQUE [Concomitant]
     Active Substance: TICAGRELOR
     Dosage: 90 MG, 2X/DAY
     Route: 048
     Dates: start: 201407, end: 20150422
  6. IKOREL [Concomitant]
     Active Substance: NICORANDIL
     Dosage: 10 MG, 2X/DAY
     Route: 048
  7. KARDEGIC [Concomitant]
     Active Substance: ASPIRIN LYSINE
     Dosage: 75 MG, 1X/DAY
     Route: 048
  8. AIROMIR /00139501/ [Concomitant]
     Dosage: 1 DF, 3X/DAY
     Route: 055
  9. ALPRESS [Suspect]
     Active Substance: PRAZOSIN
     Dosage: 5 MG, 1X/DAY
     Route: 048
     Dates: start: 2014, end: 20150422
  10. OMEPRAZOLE. [Concomitant]
     Active Substance: OMEPRAZOLE
     Dosage: 20 MG, 1X/DAY
     Route: 048
  11. IRBESARTAN HYDROCHLOROTHIAZIDE [Interacting]
     Active Substance: HYDROCHLOROTHIAZIDE\IRBESARTAN
     Indication: HYPERTENSION
     Dosage: 1 DF, 1X/DAY
     Route: 048
  12. BECLOJET [Concomitant]
     Active Substance: BECLOMETHASONE DIPROPIONATE
     Dosage: 2 DF, 2X/DAY
     Route: 055
  13. TILDIEM [Interacting]
     Active Substance: DILTIAZEM HYDROCHLORIDE
     Indication: HYPERTENSION
     Dosage: 60 MG, 2X/DAY
     Route: 048
  14. XATRAL [Interacting]
     Active Substance: ALFUZOSIN
     Indication: BENIGN PROSTATIC HYPERPLASIA
     Dosage: 10 MG, 1X/DAY
     Route: 048
     Dates: start: 2014, end: 20150422

REACTIONS (2)
  - Drug interaction [Recovered/Resolved]
  - Orthostatic hypotension [Recovered/Resolved]

NARRATIVE: CASE EVENT DATE: 201504
